FAERS Safety Report 24358775 (Version 1)
Quarter: 2024Q3

REPORT INFORMATION
  Report Type: Spontaneous
  Country: US (occurrence: US)
  Receive Date: 20240924
  Receipt Date: 20240924
  Transmission Date: 20241017
  Serious: Yes (Other)
  Sender: GENMAB
  Company Number: US-GENMAB-2024-03352

PATIENT
  Age: 7 Decade
  Sex: Female

DRUGS (1)
  1. EPKINLY [Suspect]
     Active Substance: EPCORITAMAB-BYSP
     Indication: Follicular lymphoma
     Dosage: 48 MILLIGRAM, WEEKLY
     Route: 058

REACTIONS (1)
  - Immune effector cell-associated neurotoxicity syndrome [Not Recovered/Not Resolved]
